FAERS Safety Report 19233263 (Version 1)
Quarter: 2021Q2

REPORT INFORMATION
  Report Type: Spontaneous
  Country: US (occurrence: US)
  Receive Date: 20210507
  Receipt Date: 20210507
  Transmission Date: 20210717
  Serious: Yes (Other)
  Sender: FDA-Public Use
  Company Number: US-TEVA-2021-US-1908647

PATIENT
  Age: 58 Year
  Sex: Male
  Weight: 108.86 kg

DRUGS (2)
  1. WARFARIN [Suspect]
     Active Substance: WARFARIN
     Indication: DEEP VEIN THROMBOSIS
     Dosage: MAINTENANCE LEVEL OF WARFARIN WAS MAYBE 10 OR 12 MG OF WARFARIN PER DAY.
     Route: 065
  2. WARFARIN [Interacting]
     Active Substance: WARFARIN
     Route: 065
     Dates: start: 202008

REACTIONS (7)
  - Adverse event [Unknown]
  - Deep vein thrombosis [Recovering/Resolving]
  - Deep vein thrombosis [Recovered/Resolved]
  - Limb discomfort [Recovering/Resolving]
  - Peripheral swelling [Recovering/Resolving]
  - International normalised ratio increased [Unknown]
  - Thrombosis [Unknown]

NARRATIVE: CASE EVENT DATE: 2018
